FAERS Safety Report 21450190 (Version 1)
Quarter: 2022Q4

REPORT INFORMATION
  Report Type: Report from Study
  Country: CA (occurrence: CA)
  Receive Date: 20221013
  Receipt Date: 20221013
  Transmission Date: 20230113
  Serious: Yes (Hospitalization, Disabling)
  Sender: FDA-Public Use
  Company Number: CA-MYLANLABS-2022M1112968

PATIENT

DRUGS (2)
  1. TOPOTECAN [Suspect]
     Active Substance: TOPOTECAN HYDROCHLORIDE
     Indication: Congenital retinoblastoma
     Dosage: UNK
  2. TOPOTECAN [Suspect]
     Active Substance: TOPOTECAN HYDROCHLORIDE
     Dosage: UNK, PERIOCULAR, DRUG NOT ADMINISTERED
     Route: 065

REACTIONS (10)
  - Incorrect route of product administration [Not Recovered/Not Resolved]
  - Accidental exposure to product [Not Recovered/Not Resolved]
  - Eye haemorrhage [Not Recovered/Not Resolved]
  - Vitreous disorder [Not Recovered/Not Resolved]
  - Retinal detachment [Not Recovered/Not Resolved]
  - Macular hole [Not Recovered/Not Resolved]
  - Eye injury [Not Recovered/Not Resolved]
  - Chorioretinal scar [Not Recovered/Not Resolved]
  - Retinal degeneration [Not Recovered/Not Resolved]
  - Off label use [Unknown]
